FAERS Safety Report 24465676 (Version 1)
Quarter: 2024Q4

REPORT INFORMATION
  Report Type: Report from Study
  Country: US (occurrence: US)
  Receive Date: 20241018
  Receipt Date: 20241018
  Transmission Date: 20250114
  Serious: No
  Sender: ROCHE
  Company Number: US-ROCHE-3531509

PATIENT
  Sex: Female
  Weight: 112.0 kg

DRUGS (5)
  1. XOLAIR [Suspect]
     Active Substance: OMALIZUMAB
     Indication: Asthma
     Route: 030
     Dates: start: 20240320
  2. XOLAIR [Suspect]
     Active Substance: OMALIZUMAB
  3. ADVAIR DISKUS [Concomitant]
     Active Substance: FLUTICASONE PROPIONATE\SALMETEROL XINAFOATE
     Dosage: 1 PUFF
     Route: 055
  4. SINGULAIR [Concomitant]
     Active Substance: MONTELUKAST SODIUM
     Route: 048
  5. BREO ELLIPTA [Concomitant]
     Active Substance: FLUTICASONE FUROATE\VILANTEROL TRIFENATATE
     Dosage: 1 PUFF
     Route: 055
     Dates: start: 20170612

REACTIONS (6)
  - Dysphonia [Unknown]
  - Cough [Unknown]
  - Speech disorder [Unknown]
  - Off label use [Unknown]
  - Obesity [Unknown]
  - Incorrect route of product administration [Unknown]
